FAERS Safety Report 6017447-2 (Version None)
Quarter: 2008Q4

REPORT INFORMATION
  Report Type: 
  Country: None (occurrence: None)
  Receive Date: 20081223
  Receipt Date: 20081215
  Transmission Date: 20090506
  Serious: Yes (Other)
  Sender: FDA-Public Use
  Company Number: US-BAYER-200814894BCC

PATIENT
  Age: 88 Year
  Sex: Female
  Weight: 90 kg

DRUGS (2)
  1. ALEVE [Suspect]
     Indication: ARTHRALGIA
     Dosage: TOTAL DAILY DOSE: 220 MG  UNIT DOSE: 220 MG
     Route: 048
     Dates: start: 20081208, end: 20081215
  2. HYDROCODONE BITARTRATE [Concomitant]

REACTIONS (1)
  - ANAL HAEMORRHAGE [None]
